FAERS Safety Report 6411061-2 (Version None)
Quarter: 2009Q4

REPORT INFORMATION
  Report Type: 
  Country: None (occurrence: None)
  Receive Date: 20091022
  Receipt Date: 20091015
  Transmission Date: 20100525
  Serious: Yes (Other)
  Sender: FDA-Public Use
  Company Number: CA-ABBOTT-09P-028-0603166-00

PATIENT
  Sex: Female
  Weight: 55.388 kg

DRUGS (7)
  1. HUMIRA [Suspect]
     Indication: RHEUMATOID ARTHRITIS
     Route: 058
     Dates: start: 20081015
  2. ARAVA [Concomitant]
     Indication: DRUG USE FOR UNKNOWN INDICATION
  3. METHOTREXATE [Concomitant]
     Indication: DRUG USE FOR UNKNOWN INDICATION
  4. FOLIC ACID [Concomitant]
     Indication: DRUG USE FOR UNKNOWN INDICATION
  5. ARTHROTEC [Concomitant]
     Indication: DRUG USE FOR UNKNOWN INDICATION
  6. IMOVANE [Concomitant]
     Indication: DRUG USE FOR UNKNOWN INDICATION
  7. TRYPTOPHAN [Concomitant]
     Indication: DRUG USE FOR UNKNOWN INDICATION

REACTIONS (5)
  - CONSTIPATION [None]
  - GINGIVAL BLEEDING [None]
  - GINGIVAL SWELLING [None]
  - SWOLLEN TONGUE [None]
  - WEIGHT INCREASED [None]
